FAERS Safety Report 6771727-1 (Version None)
Quarter: 2010Q2

REPORT INFORMATION
  Report Type: 
  Country: None (occurrence: None)
  Receive Date: 20100616
  Receipt Date: 20091016
  Transmission Date: 20101027
  Serious: No
  Sender: FDA-Public Use
  Company Number: US-ASTRAZENECA-2009SE20737

PATIENT
  Sex: Male

DRUGS (5)
  1. ATACAND [Suspect]
     Route: 048
  2. ASPIRIN [Concomitant]
  3. ATENOLOL [Concomitant]
  4. EPLERENONE [Concomitant]
  5. AMLODIPINE [Concomitant]

REACTIONS (1)
  - CARDIAC MURMUR [None]
